FAERS Safety Report 4838866-3 (Version None)
Quarter: 2005Q4

REPORT INFORMATION
  Report Type: 
  Country: None (occurrence: None)
  Receive Date: 20051129
  Receipt Date: 20050804
  Transmission Date: 20060501
  Serious: No
  Sender: FDA-Public Use
  Company Number: US-BRISTOL-MYERS SQUIBB COMPANY-13063649

PATIENT

DRUGS (1)
  1. QUESTRAN LIGHT [Suspect]

REACTIONS (2)
  - ABDOMINAL PAIN [None]
  - MEDICATION ERROR [None]
